FAERS Safety Report 24610322 (Version 1)
Quarter: 2024Q4

REPORT INFORMATION
  Report Type: Spontaneous
  Country: DE (occurrence: DE)
  Receive Date: 20241112
  Receipt Date: 20241112
  Transmission Date: 20250114
  Serious: Yes (Other)
  Sender: SANDOZ
  Company Number: None

PATIENT
  Age: 57 Year
  Sex: Male
  Weight: 75 kg

DRUGS (4)
  1. FLUVASTATIN SODIUM [Suspect]
     Active Substance: FLUVASTATIN SODIUM
     Indication: Low density lipoprotein increased
     Dosage: 0-0-1UNK
     Route: 065
     Dates: start: 20240423, end: 20240806
  2. FLUVASTATIN SODIUM [Suspect]
     Active Substance: FLUVASTATIN SODIUM
     Indication: Low density lipoprotein increased
     Dosage: 0-0-1UNK
     Route: 065
     Dates: end: 20240911
  3. CANDESARTAN [Concomitant]
     Active Substance: CANDESARTAN
     Indication: Blood pressure increased
     Dosage: UNK
     Route: 065
  4. METOPROLOL SUCCINATE [Concomitant]
     Active Substance: METOPROLOL SUCCINATE
     Indication: Product used for unknown indication
     Dosage: 1-0-0UNK
     Route: 065

REACTIONS (10)
  - Lipase increased [Recovering/Resolving]
  - Amylase increased [Recovering/Resolving]
  - Decreased appetite [Recovering/Resolving]
  - Eructation [Recovering/Resolving]
  - Abdominal distension [Recovering/Resolving]
  - Abdominal distension [Recovering/Resolving]
  - Faeces soft [Recovering/Resolving]
  - Abdominal pain upper [Recovering/Resolving]
  - Adverse reaction [Recovering/Resolving]
  - Dyspepsia [Recovering/Resolving]

NARRATIVE: CASE EVENT DATE: 20240429
